FAERS Safety Report 4379842-7 (Version None)
Quarter: 2004Q2

REPORT INFORMATION
  Report Type: 
  Country: None (occurrence: None)
  Receive Date: 20040615
  Receipt Date: 20040604
  Transmission Date: 20050107
  Serious: Yes (Other)
  Sender: FDA-Public Use
  Company Number: 2004037439

PATIENT
  Age: 41 Year
  Sex: Female
  Weight: 54.4316 kg

DRUGS (2)
  1. NEOSPORIN [Suspect]
     Indication: HERPES SIMPLEX
     Dosage: DIME SIZED, ONCE, TOPICAL
     Route: 061
     Dates: start: 20040601, end: 20040601
  2. ANTISEPTICS (ANTISEPTICS) [Concomitant]
     Indication: HERPES SIMPLEX
     Dosage: TOPICAL
     Route: 061
     Dates: start: 20040601, end: 20040601

REACTIONS (1)
  - HYPERSENSITIVITY [None]
